FAERS Safety Report 25745649 (Version 1)
Quarter: 2025Q3

REPORT INFORMATION
  Report Type: Spontaneous
  Country: CN (occurrence: CN)
  Receive Date: 20250901
  Receipt Date: 20250901
  Transmission Date: 20251020
  Serious: Yes (Death, Life-Threatening, Hospitalization, Other)
  Sender: Steriscience PTE
  Company Number: CN-STERISCIENCE B.V.-2025-ST-001466

PATIENT
  Age: 41 Year
  Sex: Male

DRUGS (8)
  1. ROCURONIUM BROMIDE [Suspect]
     Active Substance: ROCURONIUM BROMIDE
     Indication: Endotracheal intubation
     Route: 065
  2. ETOMIDATE [Suspect]
     Active Substance: ETOMIDATE
     Indication: General anaesthesia
     Route: 065
  3. SUFENTANIL [Suspect]
     Active Substance: SUFENTANIL
     Indication: General anaesthesia
     Route: 065
  4. REMIFENTANIL [Suspect]
     Active Substance: REMIFENTANIL
     Indication: General anaesthesia
     Dosage: 0.2 MICROGRAM/KILOGRAM, QMINUTE
     Route: 065
  5. PROPOFOL [Suspect]
     Active Substance: PROPOFOL
     Indication: General anaesthesia
     Dosage: 300 MILLIGRAM, QH
     Route: 065
  6. PROPOFOL [Suspect]
     Active Substance: PROPOFOL
     Route: 065
  7. CISATRACURIUM [Suspect]
     Active Substance: CISATRACURIUM
     Indication: General anaesthesia
     Dosage: 10 MILLIGRAM, QH
     Route: 065
  8. AMLODIPINE [Concomitant]
     Active Substance: AMLODIPINE BESYLATE
     Indication: Hypertension
     Route: 065

REACTIONS (1)
  - Hyperammonaemic encephalopathy [Fatal]
